FAERS Safety Report 5642876-6 (Version None)
Quarter: 2008Q1

REPORT INFORMATION
  Report Type: 
  Country: None (occurrence: None)
  Receive Date: 20080228
  Receipt Date: 20080226
  Transmission Date: 20080703
  Serious: Yes (Other)
  Sender: FDA-Public Use
  Company Number: PHEH2008US02202

PATIENT
  Age: 62 Year
  Sex: Female

DRUGS (4)
  1. SORAFENIB [Suspect]
     Dosage: 9 CYCLES
  2. SUTENT [Suspect]
     Dosage: 9 CYCLES
  3. PLACEBO [Suspect]
  4. HYDROCHLOROTHIAZIDE [Suspect]

REACTIONS (4)
  - BACK PAIN [None]
  - BLOOD CREATININE INCREASED [None]
  - PROTEINURIA [None]
  - RENAL CELL CARCINOMA [None]
